FAERS Safety Report 4951360-4 (Version None)
Quarter: 2006Q1

REPORT INFORMATION
  Report Type: 
  Country: None (occurrence: None)
  Receive Date: 20060317
  Receipt Date: 20060301
  Transmission Date: 20060701
  Serious: Yes (Hospitalization)
  Sender: FDA-Public Use
  Company Number: GB200602005052

PATIENT
  Age: 40 Year
  Sex: Female

DRUGS (2)
  1. CYMBALTA [Suspect]
     Indication: DEPRESSION
     Dosage: 60 MG
  2. CITALOPRAM (CITALOPRAM) [Concomitant]

REACTIONS (5)
  - BLOOD PRESSURE DECREASED [None]
  - ELECTROCARDIOGRAM PR PROLONGATION [None]
  - MALAISE [None]
  - VIRAL INFECTION [None]
  - WHITE BLOOD CELL COUNT DECREASED [None]
